FAERS Safety Report 4549614-9 (Version None)
Quarter: 2005Q1

REPORT INFORMATION
  Report Type: 
  Country: None (occurrence: None)
  Receive Date: 20050106
  Receipt Date: 20041227
  Transmission Date: 20050727
  Serious: Yes (Other)
  Sender: FDA-Public Use
  Company Number: 2004121734

PATIENT
  Age: 50 Year
  Sex: Male
  Weight: 86.1834 kg

DRUGS (2)
  1. ACCUPRIL [Suspect]
     Indication: HYPERTENSION
     Dosage: 10 MG (10 MG, 1 IN 1 D), ORAL
     Route: 048
  2. BCG VACCINE (BCG VACCINE) [Suspect]
     Indication: BLADDER CANCER
     Dates: start: 20030101

REACTIONS (7)
  - BLADDER CANCER [None]
  - CHILLS [None]
  - DIFFICULTY IN WALKING [None]
  - DRUG EFFECT DECREASED [None]
  - MYALGIA [None]
  - PROSTATIC SPECIFIC ANTIGEN INCREASED [None]
  - TUBERCULIN TEST POSITIVE [None]
